FAERS Safety Report 7083170-9 (Version None)
Quarter: 2010Q4

REPORT INFORMATION
  Report Type: 
  Country: None (occurrence: None)
  Receive Date: 20101027
  Receipt Date: 20101012
  Transmission Date: 20110411
  Serious: Yes (Other)
  Sender: FDA-Public Use
  Company Number: DSA_44130_2010

PATIENT
  Age: 85 Year
  Sex: Male

DRUGS (5)
  1. MASDIL (MASDIL-DILTIAZEM HYDROCHLORIDE) 60 MG (NOT SPECIFIED) [Suspect]
     Indication: ATRIAL FIBRILLATION
     Dosage: 60 MG TID ORAL
     Route: 048
     Dates: start: 20100630, end: 20100702
  2. OMEPRAZOLE [Concomitant]
  3. ENALAPRIL MALEATE [Concomitant]
  4. OMNIC OCAS [Concomitant]
  5. SINTROM [Concomitant]

REACTIONS (1)
  - SPONTANEOUS PENILE ERECTION [None]
